FAERS Safety Report 6150777-2 (Version None)
Quarter: 2009Q2

REPORT INFORMATION
  Report Type: 
  Country: None (occurrence: None)
  Receive Date: 20090408
  Receipt Date: 20090325
  Transmission Date: 20091009
  Serious: Yes (Hospitalization)
  Sender: FDA-Public Use
  Company Number: 2008-181252-NL

PATIENT
  Age: 36 Year
  Sex: Female

DRUGS (6)
  1. PUREGON [Suspect]
     Dosage: IU ALT INTRAMUSCULAR
     Route: 030
     Dates: start: 20060630, end: 20060704
  2. HCG5000 [Concomitant]
  3. CLOMID [Concomitant]
  4. SUPRECUR [Concomitant]
  5. DUPHASTON [Concomitant]
  6. JUVELA [Concomitant]

REACTIONS (2)
  - DRUG EXPOSURE DURING PREGNANCY [None]
  - ECTOPIC PREGNANCY [None]
